FAERS Safety Report 12159091 (Version 1)
Quarter: 2016Q1

REPORT INFORMATION
  Report Type: Spontaneous
  Country: US (occurrence: None)
  Receive Date: 20160307
  Receipt Date: 20160307
  Transmission Date: 20160526
  Serious: No
  Sender: FDA-Public Use
  Company Number: None

PATIENT
  Age: 58 Year
  Sex: Female

DRUGS (2)
  1. IMURAN [Concomitant]
     Active Substance: AZATHIOPRINE
  2. HUMIRA [Suspect]
     Active Substance: ADALIMUMAB
     Indication: CROHN^S DISEASE
     Dosage: 40MG/0.8ML EVERY OTHER WEEK SQ
     Route: 058
     Dates: start: 20151205, end: 20160219

REACTIONS (7)
  - Rash [None]
  - Pruritus [None]
  - Scab [None]
  - Burning sensation [None]
  - No therapeutic response [None]
  - Blister [None]
  - Rash pustular [None]

NARRATIVE: CASE EVENT DATE: 20151221
